FAERS Safety Report 13895452 (Version 1)
Quarter: 2017Q3

REPORT INFORMATION
  Report Type: Spontaneous
  Country: US (occurrence: US)
  Receive Date: 20170818
  Receipt Date: 20170818
  Transmission Date: 20171127
  Serious: Yes (Other)
  Sender: FDA-Public Use
  Company Number: None

PATIENT
  Age: 68 Year
  Sex: Male
  Weight: 55.8 kg

DRUGS (1)
  1. TRADJENTA [Suspect]
     Active Substance: LINAGLIPTIN
     Indication: BLOOD CHOLESTEROL INCREASED
     Route: 048
     Dates: start: 20161206, end: 20170809

REACTIONS (1)
  - Blister [None]

NARRATIVE: CASE EVENT DATE: 20170602
